FAERS Safety Report 9642980 (Version 1)
Quarter: 2013Q4

REPORT INFORMATION
  Report Type: Spontaneous
  Country: US (occurrence: US)
  Receive Date: 20131024
  Receipt Date: 20131024
  Transmission Date: 20140711
  Serious: No
  Sender: FDA-Public Use
  Company Number: US-MYLANLABS-2012S1022611

PATIENT
  Age: 58 Year
  Sex: Female

DRUGS (2)
  1. DIAZEPAM [Suspect]
     Indication: ANXIETY
     Route: 048
  2. VITAMINS [Concomitant]

REACTIONS (1)
  - Flatulence [Not Recovered/Not Resolved]
